FAERS Safety Report 24555611 (Version 1)
Quarter: 2024Q4

REPORT INFORMATION
  Report Type: Spontaneous
  Country: US (occurrence: None)
  Receive Date: 20241025
  Receipt Date: 20241025
  Transmission Date: 20250114
  Serious: Yes (Hospitalization)
  Sender: Public
  Company Number: None

PATIENT
  Sex: Female

DRUGS (3)
  1. TEMOZOLOMIDE [Suspect]
     Active Substance: TEMOZOLOMIDE
     Indication: Pancreatic carcinoma
     Dosage: DOSE OR AMOUNT AND FREQUENCY: (TEMOZOLOMIDE) TAKE 3 CAPSULES BY MOUTH AT BEDTIME ON DAYS 10-14 OF E
     Dates: start: 202410
  2. CAPECITABINE [Suspect]
     Active Substance: CAPECITABINE
     Indication: Pancreatic carcinoma
     Dosage: (CAPERCITABINE) TAKE 2 TABLETS BY MOUTH 2 TIMES A DAY ON DAYS 1-14 ON THEN 14 DAYS OFF.
  3. EVEROLIMUS [Suspect]
     Active Substance: EVEROLIMUS
     Indication: Pancreatic carcinoma

REACTIONS (2)
  - Vomiting [None]
  - Diarrhoea [None]
